FAERS Safety Report 5204926-0 (Version None)
Quarter: 2007Q1

REPORT INFORMATION
  Report Type: 
  Country: None (occurrence: None)
  Receive Date: 20070110
  Receipt Date: 20060906
  Transmission Date: 20070707
  Serious: No
  Sender: FDA-Public Use
  Company Number: US-BRISTOL-MYERS SQUIBB COMPANY-13499579

PATIENT
  Age: 5 Year
  Sex: Female
  Weight: 30 kg

DRUGS (2)
  1. ABILIFY [Suspect]
     Indication: ASPERGER'S DISORDER
     Dosage: 05-AUG-06-19-AUG-06 5MG DAILY(LOT#6B13147A,EXP.01/08)+ 20-AUG-06 CONT.10MG(LOT#5L09167A,EXP.12/07).
     Dates: start: 20060805
  2. ABILIFY [Suspect]
     Indication: OBSESSIVE-COMPULSIVE DISORDER
     Dosage: 05-AUG-06-19-AUG-06 5MG DAILY(LOT#6B13147A,EXP.01/08)+ 20-AUG-06 CONT.10MG(LOT#5L09167A,EXP.12/07).
     Dates: start: 20060805

REACTIONS (2)
  - VISUAL DISTURBANCE [None]
  - WEIGHT INCREASED [None]
